FAERS Safety Report 6049259-8 (Version None)
Quarter: 2009Q1

REPORT INFORMATION
  Report Type: 
  Country: None (occurrence: None)
  Receive Date: 20090123
  Receipt Date: 20090114
  Transmission Date: 20090719
  Serious: Yes (Hospitalization)
  Sender: FDA-Public Use
  Company Number: US-ROXANE LABORATORIES, INC.-2009-RO-00067RO

PATIENT
  Age: 9 Year
  Sex: Male
  Weight: 31 kg

DRUGS (13)
  1. LORAZEPAM [Suspect]
     Indication: AGGRESSION
     Route: 042
  2. LORAZEPAM [Suspect]
     Indication: AGITATION
  3. LORAZEPAM [Suspect]
     Indication: MUSCLE SPASTICITY
  4. LORAZEPAM [Suspect]
     Indication: DISORIENTATION
  5. SERTRALINE [Suspect]
     Indication: ABNORMAL BEHAVIOUR
     Dosage: 50MG
     Route: 048
  6. HALOPERIDOL [Suspect]
     Indication: AGGRESSION
  7. VANCOMYCIN [Suspect]
     Route: 042
  8. CEFTRIAXONE [Suspect]
     Route: 042
  9. CYPROHEPTADINE [Suspect]
     Indication: HYPERTONIA
  10. ACYCLOVIR [Suspect]
     Route: 042
  11. ACETAMINOPHEN [Suspect]
     Indication: PYREXIA
  12. SODIUM BICARBONATE [Concomitant]
     Indication: PH URINE ABNORMAL
  13. IV FLUIDS [Concomitant]
     Route: 042

REACTIONS (1)
  - SEROTONIN SYNDROME [None]
